FAERS Safety Report 21644427 (Version 1)
Quarter: 2022Q4

REPORT INFORMATION
  Report Type: Report from Study
  Country: TR (occurrence: TR)
  Receive Date: 20221125
  Receipt Date: 20221125
  Transmission Date: 20230113
  Serious: Yes (Death, Life-Threatening, Hospitalization, Other)
  Sender: FDA-Public Use
  Company Number: TR-CELGENE-TUR-20210902539

PATIENT
  Age: 75 Year
  Sex: Female
  Weight: 61 kg

DRUGS (9)
  1. POMALIDOMIDE [Suspect]
     Active Substance: POMALIDOMIDE
     Indication: Plasma cell myeloma
     Dosage: 4 MG, CYC, Q3W ON DAY 1-14 OF 21 DAYS CYCLE
     Route: 048
     Dates: start: 20210712, end: 20210718
  2. POMALIDOMIDE [Suspect]
     Active Substance: POMALIDOMIDE
     Dosage: 4 MG, CYC, Q3W ON DAY 1-14 OF 21 DAYS CYCLE;
     Route: 048
     Dates: start: 20210712, end: 20210712
  3. DEXAMETHASONE [Suspect]
     Active Substance: DEXAMETHASONE
     Indication: Plasma cell myeloma
     Dosage: ON DAYS 1,8,15 AND 22 OF 28 DAY CYCLE.
     Route: 048
     Dates: start: 20210712, end: 20210713
  4. DEXAMETHASONE [Suspect]
     Active Substance: DEXAMETHASONE
     Dosage: FREQUENCY TEXT: 1,8,15,22
     Route: 048
     Dates: end: 20210713
  5. DEXAMETHASONE [Suspect]
     Active Substance: DEXAMETHASONE
     Dosage: 20 MG, CYC;
     Route: 048
     Dates: start: 20210712, end: 20210712
  6. BORTEZOMIB [Suspect]
     Active Substance: BORTEZOMIB
     Indication: Plasma cell myeloma
     Dosage: 1.3 MG/M2, CYC, ON DAY 1, 4, 8 AND 11 OF 21 DAYS CYCLE
     Route: 058
     Dates: start: 20210712, end: 20210715
  7. BORTEZOMIB [Suspect]
     Active Substance: BORTEZOMIB
     Dosage: FREQUENCY TEXT: 1,4,8 AND 11?MG/M2
     Route: 058
     Dates: end: 20210719
  8. GLICLAZIDE [Concomitant]
     Active Substance: GLICLAZIDE
     Indication: Product used for unknown indication
     Route: 065
     Dates: start: 2011, end: 20210724
  9. INSULIN NOS [Concomitant]
     Active Substance: INSULIN NOS
     Indication: Diabetes mellitus
     Dosage: INSULIN 4 ?AMPOULE, QD, SUBCUTANEOUS FOR DIABETES MELLITUS FROM 07-JUL-2021 TO 12-JUL-2021
     Route: 058
     Dates: start: 20210707, end: 20210712

REACTIONS (5)
  - Acute kidney injury [Fatal]
  - Candida sepsis [Not Recovered/Not Resolved]
  - Gastrointestinal haemorrhage [Recovered/Resolved]
  - Renal tubular acidosis [Fatal]
  - Thrombocytopenia [Recovered/Resolved]

NARRATIVE: CASE EVENT DATE: 20210712
